FAERS Safety Report 5803448-3 (Version None)
Quarter: 2008Q2

REPORT INFORMATION
  Report Type: 
  Country: None (occurrence: None)
  Receive Date: 20080627
  Receipt Date: 20071004
  Transmission Date: 20081010
  Serious: Yes (Other)
  Sender: FDA-Public Use
  Company Number: 523140

PATIENT
  Sex: Female

DRUGS (2)
  1. INTERFERON ALFA [Suspect]
     Indication: HEPATITIS C
  2. RIBAVIRIN [Suspect]
     Indication: HEPATITIS C

REACTIONS (4)
  - DEPRESSION [None]
  - HEPATITIS [None]
  - INFLUENZA LIKE ILLNESS [None]
  - MIGRAINE [None]
